FAERS Safety Report 6780780-0 (Version None)
Quarter: 2010Q2

REPORT INFORMATION
  Report Type: 
  Country: None (occurrence: None)
  Receive Date: 20100621
  Receipt Date: 20100611
  Transmission Date: 20101027
  Serious: Yes (Other)
  Sender: FDA-Public Use
  Company Number: NZ-JNJFOC-20100604421

PATIENT
  Age: 5 Decade
  Sex: Male

DRUGS (3)
  1. RISPERDAL CONSTA [Suspect]
     Indication: DRUG USE FOR UNKNOWN INDICATION
     Dosage: 50 MG FOR ABOUT A YEAR
     Route: 030
  2. RISPERDAL CONSTA [Suspect]
     Dosage: FROM PAST 3 MONTHS (MAR-2010)
     Route: 030
  3. RISPERDAL CONSTA [Suspect]
     Route: 030

REACTIONS (3)
  - DRUG INEFFECTIVE [None]
  - OVERDOSE [None]
  - SYNCOPE [None]
